FAERS Safety Report 12501421 (Version 1)
Quarter: 2016Q2

REPORT INFORMATION
  Report Type: Spontaneous
  Country: US (occurrence: US)
  Receive Date: 20160627
  Receipt Date: 20160627
  Transmission Date: 20160815
  Serious: No
  Sender: FDA-Public Use
  Company Number: US-BAYER-2016-119314

PATIENT
  Age: 76 Year
  Sex: Female
  Weight: 88.44 kg

DRUGS (7)
  1. PRESERVISION EYE VITAMIN AND MINERAL SUPPL. [Concomitant]
     Dosage: UNK
  2. METHOTREXATE [Concomitant]
     Active Substance: METHOTREXATE
     Dosage: UNK
  3. VITAMIN D [Concomitant]
     Active Substance: CHOLECALCIFEROL
  4. FOLIC ACID. [Concomitant]
     Active Substance: FOLIC ACID
  5. VITAMIN B12 [Concomitant]
     Active Substance: CYANOCOBALAMIN
  6. CLARITIN [Suspect]
     Active Substance: LORATADINE
     Indication: SEASONAL ALLERGY
     Dosage: 1 DF, PRN
     Route: 048
     Dates: end: 20160615
  7. PREDNISONE. [Concomitant]
     Active Substance: PREDNISONE

REACTIONS (4)
  - Expired product administered [None]
  - Activities of daily living impaired [None]
  - Asthenia [Recovered/Resolved]
  - Fatigue [Recovered/Resolved]

NARRATIVE: CASE EVENT DATE: 20160615
